FAERS Safety Report 13552317 (Version 4)
Quarter: 2018Q1

REPORT INFORMATION
  Report Type: Report from Study
  Country: None (occurrence: DE)
  Receive Date: 20170517
  Receipt Date: 20180120
  Transmission Date: 20180508
  Serious: Yes (Other)
  Sender: FDA-Public Use
  Company Number: DE-ABBVIE-17K-062-1974443-00

PATIENT
  Sex: Female

DRUGS (3)
  1. HUMIRA [Suspect]
     Active Substance: ADALIMUMAB
     Indication: COLITIS ULCERATIVE
     Route: 058
     Dates: start: 201206
  2. HUMIRA [Suspect]
     Active Substance: ADALIMUMAB
     Dosage: STARTED: FIRST TRIMESTER; DISCONTINUED: GESTATIONAL WEEK 33.
     Route: 058
     Dates: start: 2017, end: 201708
  3. HUMIRA [Suspect]
     Active Substance: ADALIMUMAB
     Indication: COLITIS ULCERATIVE
     Route: 058

REACTIONS (7)
  - Iron deficiency anaemia [Unknown]
  - Uterine rupture [Unknown]
  - Live birth [Unknown]
  - Sinus tachycardia [Unknown]
  - Cervical incompetence [Unknown]
  - Exposure during pregnancy [Unknown]
  - Anti-erythrocyte antibody positive [Unknown]

NARRATIVE: CASE EVENT DATE: 2017
